FAERS Safety Report 9129505 (Version 4)
Quarter: 2013Q2

REPORT INFORMATION
  Report Type: Report from Study
  Country: PL (occurrence: PL)
  Receive Date: 20130228
  Receipt Date: 20130517
  Transmission Date: 20140414
  Serious: Yes (Hospitalization)
  Sender: FDA-Public Use
  Company Number: PHHO2013PL003189

PATIENT
  Age: 62 Year
  Sex: Male

DRUGS (3)
  1. AMN107 [Suspect]
     Indication: CHRONIC MYELOID LEUKAEMIA
     Dosage: 600 MG, BID
     Route: 048
     Dates: start: 20101201, end: 20130205
  2. AMN107 [Suspect]
     Dosage: 600 MG, BID
     Route: 048
     Dates: start: 20130217
  3. EUTHYROX [Concomitant]
     Indication: HYPOTHYROIDISM
     Dosage: 88 UG, QD
     Dates: start: 20121121

REACTIONS (1)
  - Myocardial ischaemia [Recovered/Resolved with Sequelae]
